FAERS Safety Report 7865788-6 (Version None)
Quarter: 2011Q4

REPORT INFORMATION
  Report Type: 
  Country: None (occurrence: None)
  Receive Date: 20111028
  Receipt Date: 20110224
  Transmission Date: 20120403
  Serious: No
  Sender: FDA-Public Use
  Company Number: US-GLAXOSMITHKLINE-A0915284A

PATIENT
  Age: 58 Year
  Sex: Female

DRUGS (4)
  1. COMBIVENT [Concomitant]
  2. MUCINEX [Concomitant]
  3. ADVAIR DISKUS 100/50 [Suspect]
     Indication: CHRONIC OBSTRUCTIVE PULMONARY DISEASE
     Dosage: 1PUFF TWICE PER DAY
     Route: 055
     Dates: start: 20110104, end: 20110217
  4. LISINOPRIL [Concomitant]

REACTIONS (2)
  - PANIC ATTACK [None]
  - MUSCLE SPASMS [None]
